FAERS Safety Report 5150499-0 (Version None)
Quarter: 2006Q4

REPORT INFORMATION
  Report Type: 
  Country: None (occurrence: None)
  Receive Date: 20061114
  Receipt Date: 20060913
  Transmission Date: 20070319
  Serious: Yes (Hospitalization, Other)
  Sender: FDA-Public Use
  Company Number: GB-GLAXOSMITHKLINE-B0438022A

PATIENT
  Age: 23 Year
  Sex: Female
  Weight: 67 kg

DRUGS (4)
  1. LAMICTAL [Suspect]
     Route: 048
     Dates: start: 20020101
  2. CLARITHROMYCIN [Suspect]
     Indication: TONSILLITIS
     Dosage: 250MG TWICE PER DAY
     Dates: start: 20060824, end: 20060825
  3. MICRONOR [Concomitant]
     Indication: CONTRACEPTION
     Route: 048
  4. IBUPROFEN [Concomitant]

REACTIONS (2)
  - CONVULSION [None]
  - DRUG INTERACTION [None]
